FAERS Safety Report 9736869 (Version 1)
Quarter: 2013Q4

REPORT INFORMATION
  Report Type: Spontaneous
  Country: US (occurrence: US)
  Receive Date: 20131206
  Receipt Date: 20131206
  Transmission Date: 20140711
  Serious: No
  Sender: FDA-Public Use
  Company Number: US-BIOGENIDEC-2013BI092832

PATIENT
  Age: 44 Year
  Sex: Male
  Weight: 72 kg

DRUGS (8)
  1. TECFIDERA [Suspect]
     Indication: PRODUCT USED FOR UNKNOWN INDICATION
     Route: 048
  2. B COMPLEX TAB [Concomitant]
  3. FISH OIL CAP [Concomitant]
  4. ADVIL [Concomitant]
  5. MAGNESIUM [Concomitant]
  6. GABAPENTIN [Concomitant]
  7. NIACIN [Concomitant]
  8. CLONAZEPAM [Concomitant]

REACTIONS (2)
  - Cough [Unknown]
  - Abdominal discomfort [Unknown]
